FAERS Safety Report 12544851 (Version 4)
Quarter: 2016Q4

REPORT INFORMATION
  Report Type: Spontaneous
  Country: PR (occurrence: PR)
  Receive Date: 20160711
  Receipt Date: 20161121
  Transmission Date: 20170207
  Serious: Yes (Hospitalization, Other)
  Sender: FDA-Public Use
  Company Number: PR-PFIZER INC-2016332627

PATIENT
  Age: 56 Year
  Sex: Female

DRUGS (10)
  1. AMBIEN [Suspect]
     Active Substance: ZOLPIDEM TARTRATE
     Indication: SLEEP DISORDER
     Dosage: 10 MG,ONCE
     Dates: start: 2000
  2. NORVASC [Suspect]
     Active Substance: AMLODIPINE BESYLATE
     Indication: CARDIAC DISCOMFORT
     Dosage: 5 MG, ONCE
     Dates: start: 2002
  3. COZAAR [Suspect]
     Active Substance: LOSARTAN POTASSIUM
     Indication: CARDIAC DISCOMFORT
     Dosage: 10 MG ONCE
     Dates: start: 2002
  4. SYNTHROID [Suspect]
     Active Substance: LEVOTHYROXINE SODIUM
     Indication: THYROID DISORDER
     Dosage: 112 MG ONCE
     Dates: start: 1978
  5. FLORA Q [Suspect]
     Active Substance: LACTOBACILLUS ACIDOPHILUS
     Indication: ABDOMINAL DISCOMFORT
     Dosage: 800 MG, ONCE
     Dates: start: 2006
  6. RELAFEN [Concomitant]
     Active Substance: NABUMETONE
     Dosage: UNK
  7. LYRICA [Suspect]
     Active Substance: PREGABALIN
     Indication: FIBROMYALGIA
     Dosage: 100 MG, 2X/DAY
     Dates: start: 2008
  8. PAMINE FORTE [Suspect]
     Active Substance: METHSCOPOLAMINE BROMIDE
     Indication: ABDOMINAL DISCOMFORT
     Dosage: 5 MG ONCE
     Dates: start: 2006
  9. CRESTOR [Suspect]
     Active Substance: ROSUVASTATIN CALCIUM
     Indication: BLOOD CHOLESTEROL
     Dosage: 10 MG, ONCE
     Dates: start: 2003
  10. BACLOFEN. [Concomitant]
     Active Substance: BACLOFEN
     Dosage: UNK

REACTIONS (1)
  - Neoplasm malignant [Not Recovered/Not Resolved]

NARRATIVE: CASE EVENT DATE: 201101
